FAERS Safety Report 10432350 (Version 2)
Quarter: 2015Q1

REPORT INFORMATION
  Report Type: Spontaneous
  Country: US (occurrence: None)
  Receive Date: 20140815
  Receipt Date: 20150129
  Transmission Date: 20150720
  Serious: Yes (Hospitalization)
  Sender: FDA-Public Use
  Company Number: A-NJ2014-99299

PATIENT
  Age: 81 Year
  Sex: Female

DRUGS (15)
  1. METOPROLOL [Concomitant]
     Active Substance: METOPROLOL
  2. HYDRALAZINE [Concomitant]
     Active Substance: HYDRALAZINE HYDROCHLORIDE
  3. FUROSEMIDE. [Concomitant]
     Active Substance: FUROSEMIDE
  4. OPSUMIT [Suspect]
     Active Substance: MACITENTAN
     Indication: PULMONARY ARTERIAL HYPERTENSION
     Route: 048
     Dates: start: 201404, end: 20140424
  5. WARFARIN [Concomitant]
     Active Substance: WARFARIN
  6. LIOTHYRONINE [Concomitant]
     Active Substance: LIOTHYRONINE
  7. MICARDIS [Concomitant]
     Active Substance: TELMISARTAN
  8. SIMVASTATIN. [Concomitant]
     Active Substance: SIMVASTATIN
  9. VITAMIN D3 [Concomitant]
     Active Substance: CHOLECALCIFEROL
  10. ZYRTEC [Concomitant]
     Active Substance: CETIRIZINE HYDROCHLORIDE
  11. CALCIUM [Concomitant]
     Active Substance: CALCIUM
  12. LEVOTHYROXINE [Concomitant]
     Active Substance: LEVOTHYROXINE
  13. HYDROCHLOROTHIAZIDE. [Concomitant]
     Active Substance: HYDROCHLOROTHIAZIDE
  14. ADCIRCA [Concomitant]
     Active Substance: TADALAFIL
  15. OMEPRAZOLE. [Concomitant]
     Active Substance: OMEPRAZOLE

REACTIONS (10)
  - Confusional state [None]
  - Cardiac failure congestive [None]
  - Gait disturbance [None]
  - Asthenia [None]
  - Abdominal discomfort [None]
  - Lethargy [None]
  - Malaise [None]
  - Influenza like illness [None]
  - Dyspnoea [None]
  - Somnolence [None]

NARRATIVE: CASE EVENT DATE: 201404
